FAERS Safety Report 6088919-X (Version None)
Quarter: 2009Q1

REPORT INFORMATION
  Report Type: 
  Country: None (occurrence: None)
  Receive Date: 20090224
  Receipt Date: 20090214
  Transmission Date: 20090719
  Serious: Yes (Hospitalization)
  Sender: FDA-Public Use
  Company Number: US-AMGEN-KDL318063

PATIENT
  Sex: Female

DRUGS (3)
  1. ENBREL [Suspect]
     Indication: RHEUMATOID ARTHRITIS
     Route: 058
     Dates: start: 20080130
  2. METHOTREXATE [Concomitant]
     Route: 048
  3. CELEBREX [Concomitant]

REACTIONS (12)
  - ARTHRALGIA [None]
  - ASTHENIA [None]
  - CHRONIC SINUSITIS [None]
  - CYSTITIS [None]
  - HEART RATE INCREASED [None]
  - INJECTION SITE SWELLING [None]
  - INSOMNIA [None]
  - LOWER RESPIRATORY TRACT INFECTION [None]
  - MUSCULOSKELETAL PAIN [None]
  - PARANASAL SINUS HYPERSECRETION [None]
  - TREMOR [None]
  - URINARY TRACT INFECTION [None]
